FAERS Safety Report 8369065-9 (Version None)
Quarter: 2012Q2

REPORT INFORMATION
  Report Type: 
  Country: None (occurrence: None)
  Receive Date: 20120518
  Receipt Date: 20120511
  Transmission Date: 20120825
  Serious: Yes (Hospitalization)
  Sender: FDA-Public Use
  Company Number: US-BAYER-2011-007365

PATIENT
  Age: 20 Year
  Sex: Female

DRUGS (4)
  1. NORCO [Concomitant]
  2. VICODIN [Concomitant]
  3. YAZ [Suspect]
     Dosage: UNK
     Dates: start: 20070801, end: 20071127
  4. TYLENOL W/ CODEINE NO. 3 [Concomitant]

REACTIONS (3)
  - PULMONARY EMBOLISM [None]
  - INJURY [None]
  - PAIN [None]
